FAERS Safety Report 16752237 (Version 6)
Quarter: 2022Q3

REPORT INFORMATION
  Report Type: Report from Study
  Country: JP (occurrence: JP)
  Receive Date: 20190828
  Receipt Date: 20220713
  Transmission Date: 20221026
  Serious: Yes (Hospitalization, Other)
  Sender: FDA-Public Use
  Company Number: JP-GSKJP-JP2019JPN153343AA

PATIENT

DRUGS (26)
  1. BELIMUMAB [Suspect]
     Active Substance: BELIMUMAB
     Indication: Systemic lupus erythematosus
     Dosage: 200 MG, WE
     Route: 058
     Dates: start: 20181210, end: 20181231
  2. BELIMUMAB [Suspect]
     Active Substance: BELIMUMAB
     Indication: Systemic lupus erythematosus
     Dosage: 10 MG/KG, EVERY TWO WEEKS
     Route: 041
     Dates: start: 20190313, end: 20190327
  3. PREDNISOLONE [Suspect]
     Active Substance: PREDNISOLONE
     Indication: Systemic lupus erythematosus
     Dosage: 6 MG, 1D
     Route: 048
     Dates: start: 20181210, end: 20190109
  4. PREDNISOLONE [Suspect]
     Active Substance: PREDNISOLONE
     Dosage: 15 MG, 1D
     Route: 048
     Dates: start: 20190110, end: 20190221
  5. PREDNISOLONE [Suspect]
     Active Substance: PREDNISOLONE
     Dosage: 30 MG, 1D
     Route: 048
     Dates: start: 20190327
  6. SOLU-MEDROL [Suspect]
     Active Substance: METHYLPREDNISOLONE SODIUM SUCCINATE
     Indication: Systemic lupus erythematosus
     Dosage: 500 MG, 1D
     Route: 041
     Dates: start: 20190222, end: 20190224
  7. SOLU-MEDROL [Suspect]
     Active Substance: METHYLPREDNISOLONE SODIUM SUCCINATE
     Dosage: 60 MG, 1D
     Route: 041
     Dates: start: 20190225, end: 20190310
  8. SOLU-MEDROL [Suspect]
     Active Substance: METHYLPREDNISOLONE SODIUM SUCCINATE
     Dosage: 40 MG, 1D
     Route: 041
     Dates: start: 20190311, end: 20190326
  9. WARFARIN POTASSIUM [Suspect]
     Active Substance: WARFARIN POTASSIUM
     Dosage: UNK
     Route: 065
  10. VONOPRAZAN FUMARATE [Concomitant]
     Active Substance: VONOPRAZAN FUMARATE
     Indication: Gastritis prophylaxis
     Dosage: UNK
  11. TERAMURO COMBINATION TABLETS [Concomitant]
     Dosage: UNK
  12. IMIDAPRIL HYDROCHLORIDE [Concomitant]
     Active Substance: IMIDAPRIL HYDROCHLORIDE
     Dosage: UNK
  13. ALFACALCIDOL CAPSULE [Concomitant]
     Indication: Osteoporosis prophylaxis
     Dosage: UNK
  14. REBAMIPIDE [Concomitant]
     Active Substance: REBAMIPIDE
     Indication: Gastritis prophylaxis
     Dosage: UNK
  15. HERBALS [Concomitant]
     Active Substance: HERBALS
     Dosage: UNK
  16. SULFAMETHOXAZOLE\TRIMETHOPRIM [Concomitant]
     Active Substance: SULFAMETHOXAZOLE\TRIMETHOPRIM
     Indication: Infection prophylaxis
     Dosage: UNK
  17. CALCIUM LACTATE [Concomitant]
     Active Substance: CALCIUM LACTATE
     Indication: Osteoporosis prophylaxis
     Dosage: UNK
  18. BESOFTEN (JAPAN) [Concomitant]
     Dosage: UNK
  19. GRANISETRON [Concomitant]
     Active Substance: GRANISETRON
     Indication: Gastrointestinal disorder prophylaxis
     Dosage: UNK
  20. DARBEPOETIN ALFA [Concomitant]
     Active Substance: DARBEPOETIN ALFA
     Dosage: UNK
  21. MIYA-BM [Concomitant]
     Active Substance: CLOSTRIDIUM BUTYRICUM SPORES STRAIN M-55
     Dosage: UNK
  22. BENAMBAX (PENTAMIDINE ISETHIONATE) [Concomitant]
     Indication: Prophylaxis
     Dosage: UNK
  23. AMLODIPINE BESYLATE [Concomitant]
     Active Substance: AMLODIPINE BESYLATE
     Dosage: UNK
  24. EDIROL CAPSULE [Concomitant]
     Indication: Osteoporosis prophylaxis
     Dosage: UNK
  25. PROCATEROL HYDROCHLORIDE [Concomitant]
     Active Substance: PROCATEROL HYDROCHLORIDE
     Indication: Prophylaxis
     Dosage: UNK
  26. AMPHOTERICIN B [Concomitant]
     Active Substance: AMPHOTERICIN B
     Indication: Infection prophylaxis
     Dosage: UNK

REACTIONS (10)
  - Cytomegalovirus infection [Recovered/Resolved]
  - Pruritus [Recovering/Resolving]
  - Hypocalcaemia [Recovering/Resolving]
  - Tetany [Recovering/Resolving]
  - Purpura [Recovering/Resolving]
  - Blood folate decreased [Recovering/Resolving]
  - Epistaxis [Recovering/Resolving]
  - Pyrexia [Recovering/Resolving]
  - Copper deficiency [Recovered/Resolved]
  - Zinc deficiency [Recovered/Resolved]

NARRATIVE: CASE EVENT DATE: 20190107
